FAERS Safety Report 6846041-6 (Version None)
Quarter: 2010Q3

REPORT INFORMATION
  Report Type: 
  Country: None (occurrence: None)
  Receive Date: 20100712
  Receipt Date: 20100630
  Transmission Date: 20110219
  Serious: Yes (Other)
  Sender: FDA-Public Use
  Company Number: TRP_06287_2009

PATIENT
  Sex: Female
  Weight: 85.7298 kg

DRUGS (11)
  1. RIBAPAK 600 MG (NOT SPECIFIED) [Suspect]
     Indication: HEPATITIS C
     Dosage: 600 MG BID ORAL, 600 MG BID ORAL
     Route: 048
     Dates: start: 20090131, end: 20090610
  2. RIBAPAK 600 MG (NOT SPECIFIED) [Suspect]
     Indication: HEPATITIS C
     Dosage: 600 MG BID ORAL, 600 MG BID ORAL
     Route: 048
     Dates: start: 20090101, end: 20100201
  3. INFERGEN [Suspect]
     Indication: HEPATITIS C
     Dosage: 15 UG QD SUBCUTANEOUS, 0.2 ML QD SUBCUTANEOUS, 9 UG QD SUBCUTANEOUS, 15 UG QD SUBCUTANEOUS
     Route: 058
     Dates: start: 20090605, end: 20090610
  4. INFERGEN [Suspect]
     Indication: HEPATITIS C
     Dosage: 15 UG QD SUBCUTANEOUS, 0.2 ML QD SUBCUTANEOUS, 9 UG QD SUBCUTANEOUS, 15 UG QD SUBCUTANEOUS
     Route: 058
     Dates: start: 20090620, end: 20090627
  5. INFERGEN [Suspect]
     Indication: HEPATITIS C
     Dosage: 15 UG QD SUBCUTANEOUS, 0.2 ML QD SUBCUTANEOUS, 9 UG QD SUBCUTANEOUS, 15 UG QD SUBCUTANEOUS
     Route: 058
     Dates: start: 20090628, end: 20090817
  6. INFERGEN [Suspect]
     Indication: HEPATITIS C
     Dosage: 15 UG QD SUBCUTANEOUS, 0.2 ML QD SUBCUTANEOUS, 9 UG QD SUBCUTANEOUS, 15 UG QD SUBCUTANEOUS
     Route: 058
     Dates: start: 20090818, end: 20100201
  7. PEGASYS [Suspect]
     Indication: HEPATITIS C
     Dosage: DF
     Dates: start: 20090131, end: 20090604
  8. EFFEXOR [Concomitant]
  9. IBUPROFEN TABLETS [Concomitant]
  10. NORCAL [Concomitant]
  11. HYDROCODONE BITARTRATE [Concomitant]

REACTIONS (23)
  - AGITATION [None]
  - ALOPECIA [None]
  - AMMONIA INCREASED [None]
  - ASTHENIA [None]
  - CHILLS [None]
  - CONDITION AGGRAVATED [None]
  - CONFUSIONAL STATE [None]
  - DISTURBANCE IN ATTENTION [None]
  - DRUG EFFECT DECREASED [None]
  - DRUG WITHDRAWAL SYNDROME [None]
  - FIBROMYALGIA [None]
  - HYPOAESTHESIA [None]
  - HYPOTHYROIDISM [None]
  - MUSCLE TWITCHING [None]
  - NAUSEA [None]
  - NERVOUSNESS [None]
  - NEUROPATHY PERIPHERAL [None]
  - PAIN [None]
  - PARAESTHESIA [None]
  - PYREXIA [None]
  - RESTLESS LEGS SYNDROME [None]
  - RESTLESSNESS [None]
  - SWOLLEN TONGUE [None]
